FAERS Safety Report 9354475 (Version 1)
Quarter: 2013Q2

REPORT INFORMATION
  Report Type: Spontaneous
  Country: FR (occurrence: FR)
  Receive Date: 20130618
  Receipt Date: 20130618
  Transmission Date: 20140414
  Serious: Yes (Hospitalization)
  Sender: FDA-Public Use
  Company Number: FR-ASTRAZENECA-2013SE42230

PATIENT
  Sex: Female

DRUGS (8)
  1. ZOMIGORO [Suspect]
     Indication: HEADACHE
     Route: 048
  2. PRONTALGINE [Suspect]
     Indication: HEADACHE
     Route: 048
  3. LAMALINE [Suspect]
     Indication: HEADACHE
     Route: 065
  4. LAROXYL [Concomitant]
  5. LAROXYL [Concomitant]
  6. TRANXENE [Concomitant]
  7. TRANXENE [Concomitant]
  8. PARACETAMOL [Concomitant]

REACTIONS (3)
  - Drug abuse [Recovering/Resolving]
  - Drug dependence [Recovering/Resolving]
  - Headache [Recovering/Resolving]
